FAERS Safety Report 4493284-5 (Version None)
Quarter: 2004Q4

REPORT INFORMATION
  Report Type: 
  Country: None (occurrence: None)
  Receive Date: 20041102
  Receipt Date: 20041019
  Transmission Date: 20050328
  Serious: Yes (Hospitalization)
  Sender: FDA-Public Use
  Company Number: US_980807913

PATIENT
  Age: 61 Year
  Sex: Female
  Weight: 53 kg

DRUGS (10)
  1. HUMALOG [Suspect]
     Indication: DIABETES MELLITUS
     Dosage: 3 U DAY
  2. HUMULIN N [Suspect]
     Indication: DIABETES MELLITUS
     Dosage: 5 U DAY
     Dates: end: 20010101
  3. INSULIN-INSULIN-ANIMAL (UNKNOWN FORMULATION) (INSUL [Suspect]
     Indication: DIABETES MELLITUS
     Dates: start: 19380101
  4. K-DUR 10 [Concomitant]
  5. COZAAR [Concomitant]
  6. FUROSEMIDE [Concomitant]
  7. PREMARIN [Concomitant]
  8. VERAPAMIL [Concomitant]
  9. NORTRIPTYLINE HCL [Concomitant]
  10. XANAX [Concomitant]

REACTIONS (15)
  - ARTHRALGIA [None]
  - BACK PAIN [None]
  - BLOOD GLUCOSE INCREASED [None]
  - DRUG INEFFECTIVE [None]
  - ESCHERICHIA INFECTION [None]
  - HYPOGLYCAEMIA UNAWARENESS [None]
  - INCOHERENT [None]
  - INFECTION [None]
  - INTESTINAL ISCHAEMIA [None]
  - LOSS OF CONSCIOUSNESS [None]
  - NERVE COMPRESSION [None]
  - NEUROPATHY [None]
  - RENAL FUNCTION TEST ABNORMAL [None]
  - THROMBOCYTOPENIC PURPURA [None]
  - WEIGHT DECREASED [None]
